FAERS Safety Report 22336819 (Version 8)
Quarter: 2024Q2

REPORT INFORMATION
  Report Type: Spontaneous
  Country: IT (occurrence: IT)
  Receive Date: 20230518
  Receipt Date: 20240524
  Transmission Date: 20240716
  Serious: Yes (Death, Hospitalization, Other)
  Sender: FDA-Public Use
  Company Number: IT-BRISTOL-MYERS SQUIBB COMPANY-2023-015968

PATIENT
  Age: 16 Year
  Sex: Male

DRUGS (12)
  1. AZACITIDINE [Suspect]
     Active Substance: AZACITIDINE
     Indication: Acute myeloid leukaemia recurrent
     Dosage: 125 MILLIGRAM, QD (125 MG/DAY FOR 7 DAYS)
     Route: 065
  2. AZACITIDINE [Suspect]
     Active Substance: AZACITIDINE
     Indication: Acute myeloid leukaemia
  3. AZACITIDINE [Suspect]
     Active Substance: AZACITIDINE
     Indication: Myelodysplastic syndrome
  4. AZACITIDINE [Suspect]
     Active Substance: AZACITIDINE
     Indication: Shwachman-Diamond syndrome
  5. FLUDARABINE [Suspect]
     Active Substance: FLUDARABINE PHOSPHATE
     Indication: Acute myeloid leukaemia
     Dosage: 30 MG/M2 (MILLIGRAM PER SQUARE METRE), QD CYCLICAL
     Route: 065
  6. VENETOCLAX [Suspect]
     Active Substance: VENETOCLAX
     Indication: Acute myeloid leukaemia recurrent
     Dosage: 100 MILLIGRAM, QD (FOR 28 DAYS)
     Route: 065
  7. VENETOCLAX [Suspect]
     Active Substance: VENETOCLAX
     Indication: Acute myeloid leukaemia
     Dosage: 800 MILLIGRAM, QD (FOR 28 DAYS)
     Route: 065
  8. VENETOCLAX [Suspect]
     Active Substance: VENETOCLAX
     Indication: Myelodysplastic syndrome
  9. VENETOCLAX [Suspect]
     Active Substance: VENETOCLAX
     Indication: Shwachman-Diamond syndrome
  10. CYTARABINE [Suspect]
     Active Substance: CYTARABINE
     Indication: Acute myeloid leukaemia
     Dosage: 2000 MILLIGRAM/SQ. METER, QD, CYCLICAL
     Route: 042
  11. CYTARABINE [Suspect]
     Active Substance: CYTARABINE
     Dosage: UNK LOW DOSE
     Route: 042
  12. THIOGUANINE [Suspect]
     Active Substance: THIOGUANINE
     Indication: Acute myeloid leukaemia
     Dosage: UNK (LOW-DOSE)
     Route: 048

REACTIONS (17)
  - Multiple organ dysfunction syndrome [Fatal]
  - Staphylococcal sepsis [Fatal]
  - Escherichia sepsis [Fatal]
  - Therapy non-responder [Fatal]
  - Stenotrophomonas infection [Unknown]
  - Fluid retention [Recovered/Resolved]
  - Thrombocytopenia [Unknown]
  - Stomatitis [Unknown]
  - Acute myeloid leukaemia [Unknown]
  - Infection [Recovered/Resolved]
  - Urticaria [Recovered/Resolved]
  - Oedema peripheral [Unknown]
  - Diarrhoea [Unknown]
  - Drug ineffective [Unknown]
  - Toxicity to various agents [Unknown]
  - Therapeutic product effect incomplete [Unknown]
  - Off label use [Recovered/Resolved]
